FAERS Safety Report 18208680 (Version 6)
Quarter: 2021Q1

REPORT INFORMATION
  Report Type: Report from Study
  Country: None (occurrence: US)
  Receive Date: 20200828
  Receipt Date: 20210224
  Transmission Date: 20210419
  Serious: Yes (Hospitalization, Other)
  Sender: FDA-Public Use
  Company Number: US-ABBVIE-20K-163-3444420-00

PATIENT
  Age: 55 Year
  Sex: Female
  Weight: 84.9 kg

DRUGS (15)
  1. PREDNISONE. [Concomitant]
     Active Substance: PREDNISONE
     Indication: CROHN^S DISEASE
  2. HUMIRA [Suspect]
     Active Substance: ADALIMUMAB
     Indication: CROHN^S DISEASE
     Route: 058
     Dates: start: 20200508, end: 202012
  3. LEVOTHYROXINE. [Concomitant]
     Active Substance: LEVOTHYROXINE
     Indication: HYPOTHYROIDISM
  4. BENTYL [Concomitant]
     Active Substance: DICYCLOMINE HYDROCHLORIDE
     Indication: ABDOMINAL PAIN
  5. OMEPRAZOLE. [Concomitant]
     Active Substance: OMEPRAZOLE
     Indication: GASTROOESOPHAGEAL REFLUX DISEASE
  6. VITAMIN C [Concomitant]
     Active Substance: ASCORBIC ACID
     Indication: SUPPLEMENTATION THERAPY
  7. OMEGA 3 [Concomitant]
     Active Substance: OMEGA-3 FATTY ACIDS
     Indication: SUPPLEMENTATION THERAPY
  8. IRON [Concomitant]
     Active Substance: IRON
     Indication: SUPPLEMENTATION THERAPY
  9. MAGNESIUM [Concomitant]
     Active Substance: MAGNESIUM
     Indication: SUPPLEMENTATION THERAPY
  10. HUMIRA [Suspect]
     Active Substance: ADALIMUMAB
     Indication: CROHN^S DISEASE
     Dosage: DAY 1
     Route: 058
     Dates: start: 202005, end: 202005
  11. MELOXICAM. [Concomitant]
     Active Substance: MELOXICAM
     Indication: ANTIINFLAMMATORY THERAPY
  12. HUMIRA [Suspect]
     Active Substance: ADALIMUMAB
     Dosage: DAY 15
     Route: 058
     Dates: start: 202005, end: 202005
  13. HUMIRA [Suspect]
     Active Substance: ADALIMUMAB
     Route: 058
     Dates: start: 20210117
  14. OXICAM [Suspect]
     Active Substance: PIROXICAM
     Indication: PRODUCT USED FOR UNKNOWN INDICATION
     Route: 065
  15. VITAMIN B3 [Concomitant]
     Active Substance: NIACIN
     Indication: SUPPLEMENTATION THERAPY

REACTIONS (34)
  - Chills [Recovered/Resolved]
  - Abnormal faeces [Unknown]
  - Insomnia [Unknown]
  - Blood potassium abnormal [Recovered/Resolved]
  - Depressed mood [Not Recovered/Not Resolved]
  - Anxiety [Unknown]
  - Arthritis [Unknown]
  - Muscle spasms [Recovered/Resolved]
  - Cholecystectomy [Unknown]
  - Pain in extremity [Unknown]
  - Alopecia [Unknown]
  - Joint swelling [Recovered/Resolved]
  - Loss of personal independence in daily activities [Recovering/Resolving]
  - Abnormal faeces [Not Recovered/Not Resolved]
  - Dyspnoea [Recovered/Resolved]
  - Tongue erythema [Recovered/Resolved]
  - Malaise [Not Recovered/Not Resolved]
  - Constipation [Not Recovered/Not Resolved]
  - Headache [Recovered/Resolved]
  - Arthralgia [Recovered/Resolved]
  - Gastroenteritis viral [Unknown]
  - Cough [Recovered/Resolved]
  - Nasal herpes [Unknown]
  - Cytomegalovirus infection [Recovering/Resolving]
  - Pulmonary mass [Not Recovered/Not Resolved]
  - Crohn^s disease [Unknown]
  - Pain [Recovered/Resolved]
  - Vomiting [Recovered/Resolved]
  - Inflammation [Unknown]
  - Chest pain [Unknown]
  - Crohn^s disease [Recovered/Resolved]
  - Feeling cold [Unknown]
  - Tongue discomfort [Unknown]
  - Asthenia [Unknown]

NARRATIVE: CASE EVENT DATE: 2020
